FAERS Safety Report 7783284-1 (Version None)
Quarter: 2011Q3

REPORT INFORMATION
  Report Type: 
  Country: None (occurrence: None)
  Receive Date: 20110927
  Receipt Date: 20110927
  Transmission Date: 20111222
  Serious: Yes (Hospitalization)
  Sender: FDA-Public Use
  Company Number: None

PATIENT
  Sex: Female
  Weight: 43.0917 kg

DRUGS (2)
  1. FLUOROURACIL [Suspect]
     Indication: SKIN CANCER
     Dosage: 2X DAILY
     Dates: start: 20110414, end: 20110428
  2. FLUOROURACIL [Suspect]
     Indication: PROPHYLAXIS
     Dosage: 2X DAILY
     Dates: start: 20110414, end: 20110428

REACTIONS (4)
  - OPTIC NEURITIS [None]
  - FEELING ABNORMAL [None]
  - VISION BLURRED [None]
  - NASAL DISCOMFORT [None]
